FAERS Safety Report 24178266 (Version 2)
Quarter: 2024Q4

REPORT INFORMATION
  Report Type: Spontaneous
  Country: CO (occurrence: CO)
  Receive Date: 20240806
  Receipt Date: 20241017
  Transmission Date: 20250115
  Serious: No
  Sender: PFIZER
  Company Number: CO-PFIZER INC-PV202400098586

PATIENT
  Age: 11 Year
  Sex: Male

DRUGS (1)
  1. GENOTROPIN [Suspect]
     Active Substance: SOMATROPIN
     Dosage: 1.0 MG, DAILY
     Route: 058

REACTIONS (3)
  - Accidental exposure to product [Unknown]
  - Device breakage [Unknown]
  - Device leakage [Unknown]
